FAERS Safety Report 5205928-0 (Version None)
Quarter: 2007Q1

REPORT INFORMATION
  Report Type: 
  Country: None (occurrence: None)
  Receive Date: 20070111
  Receipt Date: 20070110
  Transmission Date: 20070707
  Serious: Yes (Death)
  Sender: FDA-Public Use
  Company Number: US-GLAXOSMITHKLINE-A0614808A

PATIENT
  Age: 13 Year
  Sex: Male

DRUGS (1)
  1. SEREVENT [Suspect]
     Indication: ASTHMA EXERCISE INDUCED
     Route: 055
     Dates: end: 20020920

REACTIONS (2)
  - DEATH [None]
  - PHARMACEUTICAL PRODUCT COMPLAINT [None]
